FAERS Safety Report 10489307 (Version 30)
Quarter: 2020Q2

REPORT INFORMATION
  Report Type: Report from Study
  Country: CA (occurrence: CA)
  Receive Date: 20141002
  Receipt Date: 20200616
  Transmission Date: 20200713
  Serious: Yes (Other)
  Sender: FDA-Public Use
  Company Number: PHHY2012CA037223

PATIENT
  Age: 55 Year
  Sex: Female

DRUGS (9)
  1. METFORMIN [Concomitant]
     Active Substance: METFORMIN HYDROCHLORIDE
     Indication: PRODUCT USED FOR UNKNOWN INDICATION
     Dosage: 250 MG, BID
     Route: 065
     Dates: start: 20161015
  2. SANDOSTATIN LAR DEPOT [Suspect]
     Active Substance: OCTREOTIDE ACETATE
     Dosage: 60 MG, EVERY 2 WEEKS
     Route: 030
     Dates: start: 20121207
  3. SANDOSTATIN [Suspect]
     Active Substance: OCTREOTIDE ACETATE
     Indication: NEUROENDOCRINE TUMOUR
     Dosage: UNK MCG (TEST DOSE), ONCE/SINGLE
     Route: 058
     Dates: start: 20120125, end: 20120125
  4. SANDOSTATIN LAR DEPOT [Suspect]
     Active Substance: OCTREOTIDE ACETATE
     Indication: NEUROENDOCRINE TUMOUR
     Dosage: 30 MG, QMO
     Route: 030
     Dates: start: 20120131
  5. SANDOSTATIN LAR DEPOT [Suspect]
     Active Substance: OCTREOTIDE ACETATE
     Dosage: 60 MG, EVERY 2 WEEKS
     Route: 030
     Dates: start: 20170111
  6. OXYCONTIN [Concomitant]
     Active Substance: OXYCODONE HYDROCHLORIDE
     Indication: PRODUCT USED FOR UNKNOWN INDICATION
     Dosage: UNK
     Route: 065
  7. AFINITOR [Concomitant]
     Active Substance: EVEROLIMUS
     Indication: NEUROENDOCRINE TUMOUR
     Dosage: 10 MG, BID
     Route: 048
     Dates: start: 20160506
  8. STEMETIL//PROCHLORPERAZINE MALEATE [Concomitant]
     Active Substance: PROCHLORPERAZINE MALEATE
     Indication: PRODUCT USED FOR UNKNOWN INDICATION
     Dosage: EVERY 6 HOURS PRN
     Route: 065
  9. SANDOSTATIN LAR DEPOT [Suspect]
     Active Substance: OCTREOTIDE ACETATE
     Dosage: 60 MG, EVERY 3 WEEKS
     Route: 030
     Dates: start: 20120522

REACTIONS (35)
  - Hypertension [Recovered/Resolved]
  - Urinary tract infection [Unknown]
  - Pain [Unknown]
  - Blood glucose abnormal [Unknown]
  - Blood test abnormal [Unknown]
  - Inappropriate schedule of product administration [Unknown]
  - Needle issue [Unknown]
  - Cardiac valve disease [Unknown]
  - Heart valve incompetence [Unknown]
  - Haematuria [Recovered/Resolved]
  - Jaundice [Unknown]
  - Abdominal pain [Unknown]
  - Blood pressure increased [Unknown]
  - Body temperature decreased [Unknown]
  - Musculoskeletal pain [Recovered/Resolved]
  - Nausea [Unknown]
  - Injection site pain [Unknown]
  - Injection site discomfort [Unknown]
  - Ascites [Unknown]
  - Blood pressure systolic increased [Unknown]
  - Tumour marker abnormal [Unknown]
  - Urine analysis abnormal [Unknown]
  - Serum serotonin increased [Unknown]
  - Incorrect dose administered [Unknown]
  - Cardiac flutter [Unknown]
  - Fatigue [Unknown]
  - Fat necrosis [Unknown]
  - Groin pain [Recovered/Resolved]
  - Abdominal distension [Not Recovered/Not Resolved]
  - Vaginal haemorrhage [Recovered/Resolved]
  - Chest discomfort [Unknown]
  - Flushing [Unknown]
  - Mass [Unknown]
  - 5-hydroxyindolacetic acid increased [Unknown]
  - Cardiac disorder [Unknown]

NARRATIVE: CASE EVENT DATE: 2014
